FAERS Safety Report 7337106-3 (Version None)
Quarter: 2011Q1

REPORT INFORMATION
  Report Type: 
  Country: None (occurrence: None)
  Receive Date: 20110308
  Receipt Date: 20110105
  Transmission Date: 20110831
  Serious: Yes (Hospitalization, Other)
  Sender: FDA-Public Use
  Company Number: US-BAYER-201024692NA

PATIENT
  Sex: Female

DRUGS (3)
  1. YASMIN [Suspect]
     Indication: PRODUCT USED FOR UNKNOWN INDICATION
     Route: 048
     Dates: start: 20060701, end: 20070601
  2. LISINOPRIL [Concomitant]
     Dosage: UNK
     Dates: start: 20070627, end: 20070627
  3. DIOVAN HCT [Concomitant]
     Dosage: UNK
     Dates: start: 20070810

REACTIONS (1)
  - CEREBROVASCULAR ACCIDENT [None]
